FAERS Safety Report 4703230-4 (Version None)
Quarter: 2005Q2

REPORT INFORMATION
  Report Type: 
  Country: None (occurrence: None)
  Receive Date: 20050628
  Receipt Date: 20050620
  Transmission Date: 20051028
  Serious: Yes (Other)
  Sender: FDA-Public Use
  Company Number: 2005S1000188

PATIENT
  Age: 61 Year
  Sex: Male

DRUGS (2)
  1. ACITRETIN (ACITRETIN) [Suspect]
     Indication: ERYTHRODERMIC PSORIASIS
     Dosage: PO
     Route: 048
  2. ACITRETIN (ACITRETIN) [Suspect]
     Indication: ERYTHRODERMIC PSORIASIS
     Dosage: PO
     Route: 048

REACTIONS (4)
  - CONDITION AGGRAVATED [None]
  - GLOMERULONEPHRITIS PROLIFERATIVE [None]
  - IDIOSYNCRATIC DRUG REACTION [None]
  - RENAL IMPAIRMENT [None]
